FAERS Safety Report 18931359 (Version 1)
Quarter: 2021Q1

REPORT INFORMATION
  Report Type: Spontaneous
  Country: US (occurrence: US)
  Receive Date: 20210223
  Receipt Date: 20210223
  Transmission Date: 20210420
  Serious: No
  Sender: FDA-Public Use
  Company Number: US-JAZZ-JPI-P-013257

PATIENT
  Age: 43 Year
  Sex: Female
  Weight: 70.46 kg

DRUGS (5)
  1. XYREM [Suspect]
     Active Substance: SODIUM OXYBATE
     Indication: NARCOLEPSY
     Dosage: UNK UNKNOWN, SINGLE
     Route: 048
     Dates: start: 20101111, end: 2010
  2. POTASSIUM [Concomitant]
     Active Substance: POTASSIUM
  3. XYREM [Suspect]
     Active Substance: SODIUM OXYBATE
     Indication: CATAPLEXY
     Dosage: 3 GRAM, BID
     Route: 048
     Dates: start: 2010, end: 20101123
  4. EZETIMIBE. [Concomitant]
     Active Substance: EZETIMIBE
  5. HYDROCHLOROTHIAZIDE WITH TRIAMTERENE [Concomitant]
     Active Substance: HYDROCHLOROTHIAZIDE\TRIAMTERENE

REACTIONS (4)
  - Condition aggravated [Unknown]
  - Restless legs syndrome [Recovered/Resolved]
  - Sleep apnoea syndrome [Recovered/Resolved]
  - Generalised oedema [Unknown]

NARRATIVE: CASE EVENT DATE: 201011
